FAERS Safety Report 25600449 (Version 1)
Quarter: 2025Q3

REPORT INFORMATION
  Report Type: Spontaneous
  Country: JP (occurrence: JP)
  Receive Date: 20250724
  Receipt Date: 20250724
  Transmission Date: 20251020
  Serious: Yes (Hospitalization)
  Sender: MYLAN
  Company Number: JP-VIATRISJAPAN-2025M1060285AA

PATIENT
  Age: 8 Decade
  Sex: Female

DRUGS (16)
  1. SOLANAX [Suspect]
     Active Substance: ALPRAZOLAM
     Indication: Product used for unknown indication
  2. SOLANAX [Suspect]
     Active Substance: ALPRAZOLAM
     Route: 048
  3. SOLANAX [Suspect]
     Active Substance: ALPRAZOLAM
     Route: 048
  4. SOLANAX [Suspect]
     Active Substance: ALPRAZOLAM
  5. ESTAZOLAM [Suspect]
     Active Substance: ESTAZOLAM
     Indication: Product used for unknown indication
  6. ESTAZOLAM [Suspect]
     Active Substance: ESTAZOLAM
     Route: 048
  7. ESTAZOLAM [Suspect]
     Active Substance: ESTAZOLAM
     Route: 048
  8. ESTAZOLAM [Suspect]
     Active Substance: ESTAZOLAM
  9. FLUNITRAZEPAM [Suspect]
     Active Substance: FLUNITRAZEPAM
     Indication: Product used for unknown indication
  10. FLUNITRAZEPAM [Suspect]
     Active Substance: FLUNITRAZEPAM
     Route: 048
  11. FLUNITRAZEPAM [Suspect]
     Active Substance: FLUNITRAZEPAM
     Route: 048
  12. FLUNITRAZEPAM [Suspect]
     Active Substance: FLUNITRAZEPAM
  13. TRAZODONE HYDROCHLORIDE [Concomitant]
     Active Substance: TRAZODONE HYDROCHLORIDE
     Indication: Product used for unknown indication
  14. TRAZODONE HYDROCHLORIDE [Concomitant]
     Active Substance: TRAZODONE HYDROCHLORIDE
     Route: 048
  15. TRAZODONE HYDROCHLORIDE [Concomitant]
     Active Substance: TRAZODONE HYDROCHLORIDE
     Route: 048
  16. TRAZODONE HYDROCHLORIDE [Concomitant]
     Active Substance: TRAZODONE HYDROCHLORIDE

REACTIONS (1)
  - Altered state of consciousness [Unknown]
